FAERS Safety Report 19185607 (Version 1)
Quarter: 2021Q2

REPORT INFORMATION
  Report Type: Report from Study
  Country: US (occurrence: US)
  Receive Date: 20210427
  Receipt Date: 20210427
  Transmission Date: 20210717
  Serious: Yes (Hospitalization, Other)
  Sender: FDA-Public Use
  Company Number: NVSC2020US254637

PATIENT
  Sex: Male

DRUGS (1)
  1. ENTRESTO [Suspect]
     Active Substance: SACUBITRIL\VALSARTAN
     Indication: CARDIAC FAILURE
     Dosage: 50 MG, BID(DOSE: 24.26 MG)
     Route: 048
     Dates: start: 201909

REACTIONS (4)
  - Burning sensation [Unknown]
  - Electrocution [Unknown]
  - Complication associated with device [Unknown]
  - Ejection fraction decreased [Unknown]
